FAERS Safety Report 4522352-4 (Version None)
Quarter: 2004Q4

REPORT INFORMATION
  Report Type: 
  Country: None (occurrence: None)
  Receive Date: 20041209
  Receipt Date: 19920128
  Transmission Date: 20050328
  Serious: Yes (Hospitalization)
  Sender: FDA-Public Use
  Company Number: US-GLAXOSMITHKLINE-B0157001A

PATIENT
  Age: 71 Year

DRUGS (1)
  1. CEFTAZIDIME [Suspect]
     Indication: PSEUDOMONAS INFECTION
     Dosage: 6G PER DAY
     Route: 042

REACTIONS (5)
  - COMA [None]
  - DEATH [None]
  - MULTI-ORGAN FAILURE [None]
  - NEUROTOXICITY [None]
  - STATUS EPILEPTICUS [None]
